FAERS Safety Report 24781342 (Version 1)
Quarter: 2024Q4

REPORT INFORMATION
  Report Type: Spontaneous
  Country: US (occurrence: US)
  Receive Date: 20241227
  Receipt Date: 20241227
  Transmission Date: 20250114
  Serious: No
  Sender: CELLTRION
  Company Number: US-CELLTRION INC.-2024US010570

PATIENT

DRUGS (2)
  1. TRUXIMA [Suspect]
     Active Substance: RITUXIMAB-ABBS
     Indication: Optic neuritis
  2. PREDNISONE [Concomitant]
     Active Substance: PREDNISONE
     Dosage: SHE IS TAKING A LOWER DOSE OF PREDNISONE AT THIS TIME, 40MG DAILY, AND HER VISION HAS IMPROVED, BUT

REACTIONS (2)
  - Drug effect less than expected [Unknown]
  - Intentional product use issue [Unknown]
